FAERS Safety Report 5249280-3 (Version None)
Quarter: 2007Q1

REPORT INFORMATION
  Report Type: 
  Country: None (occurrence: None)
  Receive Date: 20070223
  Receipt Date: 20070208
  Transmission Date: 20070707
  Serious: Yes (Hospitalization)
  Sender: FDA-Public Use
  Company Number: S06-FRA-05152-01

PATIENT
  Age: 38 Year
  Sex: Female

DRUGS (9)
  1. SEROPLEX (ESCITALOPRAM) [Suspect]
     Indication: DEPRESSION
     Dosage: 15 MG QD PO
     Route: 048
     Dates: start: 20061010, end: 20061107
  2. SEROPLEX (ESCITALOPRAM) [Suspect]
     Indication: DEPRESSION
     Dosage: 10 MG QD PO
     Route: 048
     Dates: start: 20060717, end: 20061010
  3. SEROPRAM (ESCITALOPRAM HYDROBROMIDE) [Suspect]
     Indication: DEPRESSION
     Dosage: 20 MG QD PO
     Route: 048
     Dates: start: 20061108
  4. TRAMADOL HCL [Concomitant]
  5. PREDNISONE [Concomitant]
  6. NAPROXEN SODIUM [Concomitant]
  7. CLONAZEPAM [Concomitant]
  8. LANSOPRAZOLE [Concomitant]
  9. TAMOXIFEN CITRATE [Concomitant]

REACTIONS (9)
  - BLOOD BILIRUBIN INCREASED [None]
  - BLOOD CREATINE INCREASED [None]
  - BLOOD GLUCOSE INCREASED [None]
  - BLOOD UREA INCREASED [None]
  - DIARRHOEA [None]
  - FAECALOMA [None]
  - PROTEUS INFECTION [None]
  - URINARY RETENTION [None]
  - URINARY TRACT INFECTION [None]
